FAERS Safety Report 17200695 (Version 1)
Quarter: 2019Q4

REPORT INFORMATION
  Report Type: Spontaneous
  Country: FR (occurrence: FR)
  Receive Date: 20191226
  Receipt Date: 20191226
  Transmission Date: 20200122
  Serious: Yes (Hospitalization)
  Sender: FDA-Public Use
  Company Number: FR-TEVA-2019-FR-1156991

PATIENT
  Age: 49 Year
  Sex: Female
  Weight: 57 kg

DRUGS (2)
  1. ALLOPURINOL. [Suspect]
     Active Substance: ALLOPURINOL
     Indication: PROPHYLAXIS
     Dosage: 300 MG
     Route: 048
     Dates: start: 20190919, end: 20191010
  2. PEGASYS 90 MICROGRAMMES, SOLUTION INJECTABLE EN SERINGUE PR?REMPLIE [Concomitant]
     Indication: POLYCYTHAEMIA VERA
     Dosage: 1 DOSAGE FORM
     Route: 058
     Dates: start: 20190919, end: 20191010

REACTIONS (1)
  - Hepatocellular injury [Recovered/Resolved]

NARRATIVE: CASE EVENT DATE: 20190926
